FAERS Safety Report 25865973 (Version 1)
Quarter: 2025Q3

REPORT INFORMATION
  Report Type: Spontaneous
  Country: US (occurrence: US)
  Receive Date: 20250930
  Receipt Date: 20250930
  Transmission Date: 20251020
  Serious: No
  Sender: ABBVIE
  Company Number: US-ABBVIE-6474866

PATIENT

DRUGS (1)
  1. PREDNISOLONE [Suspect]
     Active Substance: PREDNISOLONE
     Indication: Product used for unknown indication
     Route: 047

REACTIONS (5)
  - Cheilitis [Unknown]
  - Glossodynia [Unknown]
  - Tongue ulceration [Unknown]
  - Palatal swelling [Unknown]
  - Swollen tongue [Unknown]
